FAERS Safety Report 10085684 (Version 2)
Quarter: 2014Q2

REPORT INFORMATION
  Report Type: Spontaneous
  Country: US (occurrence: US)
  Receive Date: 20140418
  Receipt Date: 20140602
  Transmission Date: 20141212
  Serious: No
  Sender: FDA-Public Use
  Company Number: US-B.I. PHARMACEUTICALS,INC./RIDGEFIELD-2014-BI-17159BP

PATIENT
  Age: 59 Year
  Sex: Male

DRUGS (4)
  1. COMBIVENT [Suspect]
     Indication: CHRONIC OBSTRUCTIVE PULMONARY DISEASE
     Dosage: DOSE PER APPLICATION: 20 MCG / 100 MCG; DAILY DOSE: 80 MCG/ 400 MCG
     Route: 055
     Dates: start: 201403
  2. ADVAIR [Concomitant]
     Route: 055
  3. ALBUTEROL NEBULIZER [Concomitant]
     Route: 055
  4. ATROVENT NEBULIZER [Concomitant]
     Route: 055

REACTIONS (2)
  - Wheezing [Not Recovered/Not Resolved]
  - Product quality issue [Recovered/Resolved]
